FAERS Safety Report 12243970 (Version 2)
Quarter: 2016Q2

REPORT INFORMATION
  Report Type: Report from Study
  Country: NL (occurrence: NL)
  Receive Date: 20160406
  Receipt Date: 20160427
  Transmission Date: 20160815
  Serious: Yes (Hospitalization, Other)
  Sender: FDA-Public Use
  Company Number: NL-ABBVIE-16P-114-1597185-00

PATIENT
  Age: 78 Year
  Sex: Male
  Weight: 93 kg

DRUGS (2)
  1. XTANDI [Concomitant]
     Active Substance: ENZALUTAMIDE
     Indication: PRODUCT USED FOR UNKNOWN INDICATION
     Route: 065
     Dates: start: 201603
  2. LUCRIN DEPOT [Suspect]
     Active Substance: LEUPROLIDE ACETATE
     Indication: PROSTATE CANCER
     Route: 050
     Dates: start: 20150428

REACTIONS (7)
  - Pain [Not Recovered/Not Resolved]
  - Loss of control of legs [Unknown]
  - Metastasis [Unknown]
  - Spinal cord injury [Not Recovered/Not Resolved]
  - Pneumonia [Recovered/Resolved]
  - Metastases to bone [Unknown]
  - Fall [Unknown]

NARRATIVE: CASE EVENT DATE: 201603
